FAERS Safety Report 4533133-X (Version None)
Quarter: 2004Q4

REPORT INFORMATION
  Report Type: 
  Country: None (occurrence: None)
  Receive Date: 20041221
  Receipt Date: 20041123
  Transmission Date: 20050328
  Serious: Yes (Death, Hospitalization)
  Sender: FDA-Public Use
  Company Number: ES-BRISTOL-MYERS SQUIBB COMPANY-12776860

PATIENT
  Age: 40 Year
  Sex: Female

DRUGS (3)
  1. ZERIT [Suspect]
     Indication: HIV INFECTION
     Route: 048
     Dates: start: 20040316, end: 20041115
  2. LAMIVUDINE [Concomitant]
     Dates: start: 20040316, end: 20041115
  3. LOPINAVIR + RITONAVIR [Concomitant]
     Dates: start: 20040316, end: 20041115

REACTIONS (3)
  - GASTROINTESTINAL HAEMORRHAGE [None]
  - HEPATIC CIRRHOSIS [None]
  - PORTAL VEIN THROMBOSIS [None]
